FAERS Safety Report 11705149 (Version 1)
Quarter: 2015Q4

REPORT INFORMATION
  Report Type: Spontaneous
  Country: FR (occurrence: FR)
  Receive Date: 20151106
  Receipt Date: 20151106
  Transmission Date: 20160304
  Serious: Yes (Other)
  Sender: FDA-Public Use
  Company Number: FR-PFIZER INC-2015373929

PATIENT
  Age: 13 Month

DRUGS (1)
  1. GENOTONORM [Suspect]
     Active Substance: SOMATROPIN

REACTIONS (1)
  - Hepatocellular injury [Not Recovered/Not Resolved]
